FAERS Safety Report 11214764 (Version 1)
Quarter: 2015Q2

REPORT INFORMATION
  Report Type: Spontaneous
  Country: US (occurrence: None)
  Receive Date: 20150622
  Receipt Date: 20150622
  Transmission Date: 20150821
  Serious: Yes (Hospitalization)
  Sender: FDA-Public Use
  Company Number: 2015JUB00181

PATIENT
  Age: 17 Year
  Sex: Male

DRUGS (4)
  1. METFORMIN [Concomitant]
     Active Substance: METFORMIN HYDROCHLORIDE
  2. OXCARBAZEPINE (OXCARBAZEPINE) UNKNOWN [Suspect]
     Active Substance: OXCARBAZEPINE
     Indication: EPILEPSY
  3. TOPIRAMATE. [Concomitant]
     Active Substance: TOPIRAMATE
  4. LEVOTHYROXINE [Concomitant]
     Active Substance: LEVOTHYROXINE

REACTIONS (10)
  - Lymphopenia [None]
  - Chest pain [None]
  - Lupus-like syndrome [None]
  - Productive cough [None]
  - Chest X-ray abnormal [None]
  - Arthralgia [None]
  - Weight decreased [None]
  - Pneumonia [None]
  - Gait disturbance [None]
  - Pleural effusion [None]
